FAERS Safety Report 6793616-9 (Version None)
Quarter: 2010Q2

REPORT INFORMATION
  Report Type: 
  Country: None (occurrence: None)
  Receive Date: 20100624
  Receipt Date: 20081217
  Transmission Date: 20101027
  Serious: No
  Sender: FDA-Public Use
  Company Number: US-PFIZER INC-2008157422

PATIENT
  Sex: Female

DRUGS (6)
  1. XALATAN [Suspect]
     Dosage: UNK
     Dates: start: 20070101
  2. COZAAR [Suspect]
     Dosage: UNK
  3. MONTELUKAST SODIUM [Concomitant]
     Dosage: UNK
  4. FUROSEMIDE [Concomitant]
     Dosage: UNK
  5. CENESTIN [Concomitant]
     Dosage: UNK
  6. ALLEGRA [Concomitant]
     Dosage: UNK

REACTIONS (1)
  - RASH [None]
